FAERS Safety Report 9767714 (Version 1)
Quarter: 2013Q4

REPORT INFORMATION
  Report Type: Spontaneous
  Country: US (occurrence: US)
  Receive Date: 20131217
  Receipt Date: 20131217
  Transmission Date: 20140711
  Serious: No
  Sender: FDA-Public Use
  Company Number: US-GILEAD-2009-0021349

PATIENT
  Age: 49 Year
  Sex: Female

DRUGS (8)
  1. VIREAD [Suspect]
     Indication: HIV INFECTION
     Dates: start: 20081226
  2. VIREAD [Suspect]
     Route: 048
  3. INTELENCE [Suspect]
     Indication: HIV INFECTION
     Dates: start: 2008
  4. PREZISTA [Suspect]
     Indication: HIV INFECTION
     Dates: start: 20081226
  5. PREZISTA [Suspect]
  6. RITONAVIR [Suspect]
     Indication: HIV INFECTION
     Dates: start: 20081226
  7. RITONAVIR [Suspect]
  8. CELEXA [Concomitant]

REACTIONS (1)
  - Rash morbilliform [Recovered/Resolved]
